FAERS Safety Report 23261162 (Version 1)
Quarter: 2023Q4

REPORT INFORMATION
  Report Type: Spontaneous
  Country: US (occurrence: US)
  Receive Date: 20231205
  Receipt Date: 20231205
  Transmission Date: 20240109
  Serious: No
  Sender: FDA-Public Use
  Company Number: US-CELLTRION INC.-2023US011924

PATIENT

DRUGS (1)
  1. TRUXIMA [Suspect]
     Active Substance: RITUXIMAB-ABBS
     Indication: Granulomatosis with polyangiitis
     Dosage: 500 MG EVERY 6 MONTHS
     Dates: start: 20230604

REACTIONS (2)
  - Insurance issue [Unknown]
  - Therapy interrupted [Unknown]
